FAERS Safety Report 9269660 (Version 2)
Quarter: 2013Q3

REPORT INFORMATION
  Report Type: Spontaneous
  Country: US (occurrence: US)
  Receive Date: 20130503
  Receipt Date: 20130906
  Transmission Date: 20140515
  Serious: Yes (Hospitalization)
  Sender: FDA-Public Use
  Company Number: US-BAYER-2013-053294

PATIENT
  Age: 23 Year
  Sex: Female

DRUGS (12)
  1. YAZ [Suspect]
  2. DARVOCET [Concomitant]
     Dosage: 1 TAB 4 TIMES DAILY
     Route: 048
     Dates: start: 20090323
  3. DILAUDID [Concomitant]
     Indication: PAIN
     Dosage: 3 MG, PRN
     Route: 058
     Dates: start: 20090323
  4. LEVAQUIN [Concomitant]
     Dosage: 750 MG, DAILY
     Route: 042
     Dates: start: 20090323
  5. VICODIN [Concomitant]
     Dosage: 1-2 TABS Q 6-8 HOURS AS NEEDED
     Route: 048
     Dates: start: 20090324
  6. FLEXERIL [Concomitant]
     Indication: MUSCLE SPASMS
     Dosage: 10 MG, Q 6 PRN
     Route: 048
     Dates: start: 20090324
  7. MOTRIN [Concomitant]
     Indication: PAIN
     Dosage: 800 MG, Q 6 HOURS
     Route: 048
     Dates: start: 20090324
  8. FENTANYL [Concomitant]
     Indication: ANGIOGRAM
     Dosage: 50 MCG, 50 MCG
     Dates: start: 20090325
  9. FENTANYL [Concomitant]
     Indication: ANGIOGRAM
     Dosage: UNK
     Route: 042
     Dates: start: 20090325
  10. MIDAZOLAM [Concomitant]
     Indication: ANGIOGRAM
     Dosage: 1 MG, UNK
     Dates: start: 20090325
  11. LIDOCAINE [Concomitant]
     Dosage: UNK
     Dates: start: 20090325
  12. VERSED [Concomitant]
     Dosage: UNK
     Route: 042
     Dates: start: 20090325

REACTIONS (2)
  - Deep vein thrombosis [None]
  - Deep vein thrombosis [None]
